FAERS Safety Report 6822017-X (Version None)
Quarter: 2010Q3

REPORT INFORMATION
  Report Type: 
  Country: None (occurrence: None)
  Receive Date: 20100707
  Receipt Date: 20100707
  Transmission Date: 20110219
  Serious: No
  Sender: FDA-Public Use
  Company Number: None

PATIENT
  Sex: Female
  Weight: 88.6 kg

DRUGS (1)
  1. PRAMIPEXOLE DIHYDROCHLORIDE [Suspect]
     Indication: RESTLESS LEGS SYNDROME
     Dosage: 1.25MG/D TID PO
     Route: 048
     Dates: start: 20020101

REACTIONS (4)
  - DRUG EFFECT DECREASED [None]
  - FEELING JITTERY [None]
  - PRODUCT SUBSTITUTION ISSUE [None]
  - RESTLESS LEGS SYNDROME [None]
